FAERS Safety Report 15374847 (Version 13)
Quarter: 2020Q2

REPORT INFORMATION
  Report Type: Spontaneous
  Country: FR (occurrence: FR)
  Receive Date: 20180912
  Receipt Date: 20200430
  Transmission Date: 20200713
  Serious: Yes (Hospitalization, Other)
  Sender: FDA-Public Use
  Company Number: FR-PFIZER INC-2018367204

PATIENT
  Age: 23 Year
  Sex: Male
  Weight: 49 kg

DRUGS (22)
  1. TRIFLUCAN [Suspect]
     Active Substance: FLUCONAZOLE
     Indication: RASH
     Dosage: 100 MG, QD
     Route: 048
     Dates: start: 20090106, end: 20090118
  2. TRIFLUCAN [Suspect]
     Active Substance: FLUCONAZOLE
     Dosage: 200 MG, 1X/DAY
     Route: 048
     Dates: start: 20090119, end: 20090130
  3. CALCIUM CARBONATE. [Suspect]
     Active Substance: CALCIUM CARBONATE
     Dosage: 1 DF, DAILY
     Route: 048
     Dates: start: 20081227
  4. VANCOMYCIN HCL [Suspect]
     Active Substance: VANCOMYCIN HYDROCHLORIDE
     Dosage: 2 G, QD
     Route: 042
     Dates: start: 20081222, end: 20090112
  5. SOLU-MEDROL [Suspect]
     Active Substance: METHYLPREDNISOLONE SODIUM SUCCINATE
     Indication: CROHN^S DISEASE
     Dosage: 100 MG, UNK
     Dates: start: 20090120
  6. PEVARYL [Suspect]
     Active Substance: ECONAZOLE NITRATE
     Indication: RASH
     Dosage: 2 DF, UNK
     Route: 061
     Dates: start: 20090114
  7. ALANINE [Suspect]
     Active Substance: ALANINE
     Indication: MALNUTRITION
     Dosage: 4000 ML, DAILY
     Route: 041
     Dates: start: 20081228, end: 20090207
  8. LOVENOX [Suspect]
     Active Substance: ENOXAPARIN SODIUM
     Dosage: 1 DF, 1X/DAY
     Route: 058
     Dates: start: 20081224
  9. AERIUS (DESLORATADINE) [Suspect]
     Active Substance: DESLORATADINE
     Indication: RASH
     Dosage: 1 DF, 1X/DAY
     Route: 048
     Dates: start: 20090107
  10. VANCOMYCIN HCL [Suspect]
     Active Substance: VANCOMYCIN HYDROCHLORIDE
     Indication: ABSCESS
     Dosage: 2 G, QD
     Route: 042
     Dates: start: 20081220, end: 20090112
  11. SPECIAFOLDINE [Suspect]
     Active Substance: FOLIC ACID
     Dosage: 3 DF, QD
     Route: 048
     Dates: start: 20081223
  12. AERIUS [EBASTINE] [Suspect]
     Active Substance: EBASTINE
     Indication: RASH
     Dosage: 1 DF, QD
     Route: 048
     Dates: start: 20090107
  13. TRANXENE [Suspect]
     Active Substance: CLORAZEPATE DIPOTASSIUM
     Indication: ANXIETY
     Dosage: 1 DF, QD
     Route: 042
     Dates: start: 20081222, end: 20090123
  14. REMICADE [Suspect]
     Active Substance: INFLIXIMAB
     Indication: CROHN^S DISEASE
     Dosage: 100 MG, UNK
     Route: 042
     Dates: start: 20090120
  15. STRUCTOKABIVEN [Suspect]
     Active Substance: AMINO ACIDS\DEXTROSE\ELECTROLYTES NOS
     Indication: MALNUTRITION
     Dosage: 4000 ML, 1X/DAY
     Route: 041
     Dates: start: 20081228, end: 20090207
  16. LEKOVIT CA [Suspect]
     Active Substance: CALCIUM CARBONATE\CHOLECALCIFEROL
     Dosage: 1 DF, 1X/DAY
     Route: 048
     Dates: start: 20081227
  17. TIENAM [Suspect]
     Active Substance: CILASTATIN SODIUM\IMIPENEM
     Indication: ABSCESS
     Dosage: UNK
     Route: 042
     Dates: start: 20081222, end: 20090112
  18. METHYLPREDNISOLONE SODIUM SUCCINATE. [Suspect]
     Active Substance: METHYLPREDNISOLONE SODIUM SUCCINATE
     Indication: CROHN^S DISEASE
     Dosage: 100 MG, UNK
     Route: 042
     Dates: start: 20090120
  19. SOLU-MEDROL [Suspect]
     Active Substance: METHYLPREDNISOLONE SODIUM SUCCINATE
     Indication: CROHN^S DISEASE
     Dosage: 60 MG, UNK
     Route: 048
     Dates: start: 20080811
  20. ALANINE [Suspect]
     Active Substance: ALANINE
     Indication: PARENTERAL NUTRITION
     Dosage: UNK
     Route: 041
  21. STRUCTOKABIVEN [Suspect]
     Active Substance: AMINO ACIDS\DEXTROSE\ELECTROLYTES NOS
     Indication: PARENTERAL NUTRITION
  22. PRIMAXIN IV [Suspect]
     Active Substance: CILASTATIN SODIUM\IMIPENEM
     Indication: ABSCESS
     Dosage: UNK
     Route: 042
     Dates: start: 20081222, end: 20090112

REACTIONS (3)
  - Hepatitis [Recovering/Resolving]
  - Weight decreased [Unknown]
  - Fungal test positive [Unknown]

NARRATIVE: CASE EVENT DATE: 20090106
